FAERS Safety Report 7949894-3 (Version None)
Quarter: 2011Q4

REPORT INFORMATION
  Report Type: 
  Country: None (occurrence: None)
  Receive Date: 20111130
  Receipt Date: 20111125
  Transmission Date: 20120403
  Serious: Yes (Other)
  Sender: FDA-Public Use
  Company Number: US-PFIZER INC-2011278850

PATIENT
  Sex: Male
  Weight: 100.7 kg

DRUGS (4)
  1. LYRICA [Suspect]
     Indication: MIGRAINE
     Dosage: 100 MG, 2X/DAY
     Route: 048
     Dates: start: 20111017
  2. METOPROLOL [Concomitant]
     Indication: HYPERTENSION
     Dosage: 50MG, DAILY
  3. SAVELLA [Suspect]
     Indication: MIGRAINE
     Dosage: 100 MG, 2X/DAY
     Dates: start: 20111017
  4. NADOLOL [Suspect]
     Indication: MIGRAINE
     Dosage: 80MG, UNK
     Dates: start: 20111017

REACTIONS (1)
  - DYSURIA [None]
